FAERS Safety Report 10420486 (Version 1)
Quarter: 2014Q3

REPORT INFORMATION
  Report Type: Spontaneous
  Country: US (occurrence: None)
  Receive Date: 20140709
  Receipt Date: 20140709
  Transmission Date: 20150326
  Serious: Yes (Other)
  Sender: FDA-Public Use
  Company Number: PHEH2014US003388

PATIENT
  Sex: Male

DRUGS (3)
  1. ALIVE (BENZALKONIUM CHLORIDE) [Concomitant]
  2. LISINOPRIL. [Concomitant]
     Active Substance: LISINOPRIL
  3. GLEEVEC [Suspect]
     Active Substance: IMATINIB MESYLATE
     Indication: GASTROINTESTINAL STROMAL TUMOUR
     Route: 048

REACTIONS (10)
  - Pain [None]
  - Anxiety [None]
  - Wrong technique in drug usage process [None]
  - Dysgeusia [None]
  - Neoplasm recurrence [None]
  - Drug effect decreased [None]
  - Product quality issue [None]
  - Nausea [None]
  - Gastrointestinal stromal tumour [None]
  - Hearing impaired [None]
